FAERS Safety Report 6497965-3 (Version None)
Quarter: 2009Q4

REPORT INFORMATION
  Report Type: 
  Country: None (occurrence: None)
  Receive Date: 20091215
  Receipt Date: 20091204
  Transmission Date: 20100525
  Serious: No
  Sender: FDA-Public Use
  Company Number: US-ROXANE LABORATORIES, INC.-2009-RO-01219RO

PATIENT

DRUGS (1)
  1. MIDAZOLAM HCL [Suspect]
     Indication: SEDATION

REACTIONS (3)
  - MEDICATION ERROR [None]
  - OVERDOSE [None]
  - SEDATION [None]
